FAERS Safety Report 11301664 (Version 1)
Quarter: 2015Q3

REPORT INFORMATION
  Report Type: Spontaneous
  Country: US (occurrence: None)
  Receive Date: 20150723
  Receipt Date: 20150723
  Transmission Date: 20151125
  Serious: No
  Sender: FDA-Public Use
  Company Number: None

PATIENT
  Age: 66 Year
  Sex: Male

DRUGS (1)
  1. SIMPONI [Suspect]
     Active Substance: GOLIMUMAB
     Indication: COLITIS ULCERATIVE
     Dosage: 100 MG Q4WK SC
     Route: 058
     Dates: start: 20150205, end: 20150722

REACTIONS (2)
  - Condition aggravated [None]
  - Treatment failure [None]

NARRATIVE: CASE EVENT DATE: 20150722
